FAERS Safety Report 6337312-0 (Version None)
Quarter: 2009Q3

REPORT INFORMATION
  Report Type: 
  Country: None (occurrence: None)
  Receive Date: 20090828
  Receipt Date: 20090828
  Transmission Date: 20100115
  Serious: Yes (Hospitalization)
  Sender: FDA-Public Use
  Company Number: None

PATIENT
  Sex: Female
  Weight: 62.2 kg

DRUGS (2)
  1. VORINSTAT 300MG DAY 1-14 PO (CYCLE=21DAYS [Suspect]
  2. BORTEZOMIB [Suspect]

REACTIONS (4)
  - COUGH [None]
  - DYSPNOEA [None]
  - NAUSEA [None]
  - VOMITING [None]
